FAERS Safety Report 17860364 (Version 2)
Quarter: 2020Q2

REPORT INFORMATION
  Report Type: Report from Study
  Country: US (occurrence: US)
  Receive Date: 20200604
  Receipt Date: 20200625
  Transmission Date: 20200714
  Serious: Yes (Hospitalization)
  Sender: FDA-Public Use
  Company Number: US-EISAI MEDICAL RESEARCH-EC-2020-073947

PATIENT
  Age: 69 Year
  Sex: Male

DRUGS (2)
  1. LENVIMA [Suspect]
     Active Substance: LENVATINIB
     Route: 048
     Dates: start: 20200619, end: 20200621
  2. LENVIMA [Suspect]
     Active Substance: LENVATINIB
     Indication: THYROID CANCER
     Route: 048
     Dates: start: 20200415, end: 20200618

REACTIONS (10)
  - Dizziness [Recovering/Resolving]
  - Abdominal discomfort [Not Recovered/Not Resolved]
  - Nausea [Not Recovered/Not Resolved]
  - Decreased appetite [Unknown]
  - Hypertension [Not Recovered/Not Resolved]
  - Dysphonia [Not Recovered/Not Resolved]
  - Glossodynia [Not Recovered/Not Resolved]
  - Asthenia [Not Recovered/Not Resolved]
  - Taste disorder [Unknown]
  - Blood sodium decreased [Recovering/Resolving]

NARRATIVE: CASE EVENT DATE: 2020
